FAERS Safety Report 22208722 (Version 1)
Quarter: 2023Q2

REPORT INFORMATION
  Report Type: Spontaneous
  Country: GB (occurrence: GB)
  Receive Date: 20230413
  Receipt Date: 20230413
  Transmission Date: 20230722
  Serious: Yes (Disabling, Other)
  Sender: FDA-Public Use
  Company Number: GB-MHRA-MED-202303271327087970-ZCMJK

PATIENT
  Age: 57 Year
  Sex: Female
  Weight: 76 kg

DRUGS (2)
  1. CIPROFLOXACIN [Suspect]
     Active Substance: CIPROFLOXACIN
     Indication: Sepsis
     Dates: start: 20221223, end: 20221226
  2. RANEXA [Concomitant]
     Active Substance: RANOLAZINE
     Dosage: 500 MG, UNK

REACTIONS (4)
  - Inflammatory pain [Not Recovered/Not Resolved]
  - Neuralgia [Unknown]
  - Tendon pain [Unknown]
  - Tendonitis [Unknown]

NARRATIVE: CASE EVENT DATE: 20221226
